FAERS Safety Report 8096753-4 (Version None)
Quarter: 2012Q1

REPORT INFORMATION
  Report Type: 
  Country: None (occurrence: None)
  Receive Date: 20120129
  Receipt Date: 20111122
  Transmission Date: 20120608
  Serious: No
  Sender: FDA-Public Use
  Company Number: US-ABBOTT-11P-163-0858025-00

PATIENT
  Sex: Female

DRUGS (7)
  1. HUMIRA [Suspect]
  2. HUMIRA [Suspect]
  3. HUMIRA [Suspect]
     Dates: start: 20111008, end: 20111008
  4. MULTI-VITAMIN [Concomitant]
     Indication: PRODUCT USED FOR UNKNOWN INDICATION
  5. BALSALAZIDE DISODIUM [Concomitant]
     Indication: INFLAMMATION
     Dosage: 2 CAPSULES THREE TIME DAILY
  6. PRILOSEC [Concomitant]
     Indication: ABDOMINAL DISCOMFORT
  7. HUMIRA [Suspect]
     Indication: CROHN'S DISEASE
     Dosage: DAY ONE
     Route: 058
     Dates: start: 20110923, end: 20110923

REACTIONS (12)
  - NAUSEA [None]
  - SOMNOLENCE [None]
  - INJECTION SITE PAIN [None]
  - MALAISE [None]
  - DISTURBANCE IN ATTENTION [None]
  - DIARRHOEA [None]
  - FATIGUE [None]
  - OROPHARYNGEAL PAIN [None]
  - INJECTION SITE HAEMATOMA [None]
  - INJECTION SITE NODULE [None]
  - UPPER-AIRWAY COUGH SYNDROME [None]
  - CONDITION AGGRAVATED [None]
